FAERS Safety Report 8341606-7 (Version None)
Quarter: 2012Q2

REPORT INFORMATION
  Report Type: 
  Country: None (occurrence: None)
  Receive Date: 20120507
  Receipt Date: 20120427
  Transmission Date: 20120825
  Serious: Yes (Other)
  Sender: FDA-Public Use
  Company Number: US-ASTRAZENECA-2011SE49555

PATIENT
  Age: 66 Year
  Sex: Female
  Weight: 64.9 kg

DRUGS (22)
  1. PLONACEPAM [Concomitant]
     Indication: BIPOLAR DISORDER
     Route: 048
     Dates: start: 20050101
  2. TRAZODONE HCL [Concomitant]
     Dates: start: 20081201
  3. SIMVALTA [Concomitant]
     Indication: ANXIETY
     Dosage: 90 MG ONCE
     Route: 048
     Dates: start: 20050101
  4. SIMVALTA [Concomitant]
     Route: 048
     Dates: start: 20081201
  5. TRAZODONE HCL [Concomitant]
  6. TAGAMET HB [Concomitant]
     Dosage: 200, 2-6 DAILY
  7. CRESTOR [Concomitant]
     Route: 048
  8. XANAX [Concomitant]
     Dosage: ONE TO TWO TABLETS DAILY
  9. SYMBICORT [Concomitant]
     Dosage: 160 MCG, PRN
     Route: 055
  10. ACETAMINOPHEN AND HYDROCODONE BITARTRATE [Concomitant]
     Indication: PAIN
     Dosage: 7.5-500 TID (THREE TIMES A DAY)
     Route: 048
     Dates: start: 20090101
  11. NAPROXEN [Concomitant]
     Indication: PAIN
     Route: 048
     Dates: start: 20110501
  12. SIMVALTA [Concomitant]
     Route: 048
     Dates: start: 20081201
  13. TRAZODONE HCL [Concomitant]
  14. SEROQUEL XR [Suspect]
     Route: 048
  15. PLONACEPAM [Concomitant]
     Indication: NERVOUS SYSTEM DISORDER
     Route: 048
     Dates: start: 20050101
  16. SEROQUEL XR [Suspect]
     Indication: INSOMNIA
     Dosage: 300 MG ONCE
     Route: 048
     Dates: start: 20010101
  17. VICODIN [Concomitant]
  18. CYMBALTA [Concomitant]
  19. SEROQUEL XR [Suspect]
     Route: 048
  20. SIMVALTA [Concomitant]
     Indication: BIPOLAR DISORDER
     Dosage: 90 MG ONCE
     Route: 048
     Dates: start: 20050101
  21. CLONAZEPAM [Concomitant]
  22. OXYCODONE HCL AND ACETAMINOPHEN [Concomitant]
     Dosage: 5/325 MG THREE TIMES A DAY

REACTIONS (32)
  - BREAST CANCER [None]
  - VOMITING [None]
  - ARTHRALGIA [None]
  - PALPITATIONS [None]
  - DYSPHAGIA [None]
  - MALAISE [None]
  - OFF LABEL USE [None]
  - BIPOLAR DISORDER [None]
  - GASTRITIS [None]
  - APHAGIA [None]
  - DYSPNOEA [None]
  - HEARING IMPAIRED [None]
  - ABDOMINAL PAIN UPPER [None]
  - WEIGHT DECREASED [None]
  - DEPRESSION [None]
  - NAUSEA [None]
  - TREMOR [None]
  - OSTEOPOROSIS [None]
  - CHEST PAIN [None]
  - ARTERIAL INSUFFICIENCY [None]
  - DIARRHOEA [None]
  - LOSS OF CONSCIOUSNESS [None]
  - INTENTIONAL DRUG MISUSE [None]
  - INSOMNIA [None]
  - COUGH [None]
  - ANXIETY [None]
  - OSTEOARTHRITIS [None]
  - ARTERIOSCLEROSIS [None]
  - SUICIDAL IDEATION [None]
  - FALL [None]
  - PARAESTHESIA [None]
  - DIZZINESS [None]
